FAERS Safety Report 7212369-3 (Version None)
Quarter: 2011Q1

REPORT INFORMATION
  Report Type: 
  Country: None (occurrence: None)
  Receive Date: 20110106
  Receipt Date: 20110104
  Transmission Date: 20110831
  Serious: Yes (Congenital Anomaly, Other)
  Sender: FDA-Public Use
  Company Number: US-BRISTOL-MYERS SQUIBB COMPANY-15034838

PATIENT
  Age: 1 Year
  Sex: Male
  Weight: 3 kg

DRUGS (7)
  1. PROVIGIL [Suspect]
     Dosage: TABLET
     Route: 064
     Dates: start: 20090101
  2. NASONEX [Concomitant]
     Route: 064
     Dates: start: 20090101
  3. BUSPAR [Suspect]
     Route: 064
     Dates: start: 20090101
  4. XYREM [Concomitant]
  5. LEXAPRO [Concomitant]
     Route: 064
     Dates: start: 20090101
  6. LEVOTHYROXINE [Concomitant]
     Route: 064
     Dates: start: 20090101
  7. METFORMIN HCL [Suspect]
     Route: 064
     Dates: start: 20090101

REACTIONS (3)
  - VENTRICULAR SEPTAL DEFECT [None]
  - TRANSPOSITION OF THE GREAT VESSELS [None]
  - CARDIAC MURMUR [None]
